FAERS Safety Report 5809742-4 (Version None)
Quarter: 2008Q3

REPORT INFORMATION
  Report Type: 
  Country: None (occurrence: None)
  Receive Date: 20080709
  Receipt Date: 20080630
  Transmission Date: 20090109
  Serious: Yes (Death, Hospitalization, Other)
  Sender: FDA-Public Use
  Company Number: 2008-01272

PATIENT
  Age: 70 Year
  Sex: Female
  Weight: 65 kg

DRUGS (9)
  1. VELCADE [Suspect]
     Indication: MULTIPLE MYELOMA
     Dosage: 3.5 MG, 1.60 MG, INTRAVENOUS
     Dates: start: 20070522, end: 20070529
  2. VELCADE [Suspect]
     Indication: MULTIPLE MYELOMA
     Dosage: 3.5 MG, 1.60 MG, INTRAVENOUS
     Dates: start: 20080101, end: 20080404
  3. DEXAMETHASONE [Concomitant]
  4. DIFLUCAN [Concomitant]
  5. SULFAMETHOXAZOLE AND TRIMETHOPRIM [Concomitant]
  6. AMLODIN (AMLODIPINE BESILATE4) [Concomitant]
  7. PERINDOPRIL ERBUMINE [Concomitant]
  8. IMMUNE GLOBULIN INTRAVENOUS (HUMAN) [Concomitant]
  9. PREDONINE-1 (PREDNISOLONE ACETATE) [Concomitant]

REACTIONS (7)
  - ASTHENIA [None]
  - BRAIN DEATH [None]
  - BRAIN INJURY [None]
  - CARDIAC ARREST [None]
  - DYSPNOEA [None]
  - INFECTION [None]
  - LOSS OF CONSCIOUSNESS [None]
